FAERS Safety Report 15155402 (Version 1)
Quarter: 2018Q3

REPORT INFORMATION
  Report Type: Spontaneous
  Country: US (occurrence: US)
  Receive Date: 20180717
  Receipt Date: 20180717
  Transmission Date: 20181010
  Serious: No
  Sender: FDA-Public Use
  Company Number: US-BAUSCH-BL-2018-018521

PATIENT
  Age: 67 Year
  Sex: Female

DRUGS (4)
  1. PROLENSA [Suspect]
     Active Substance: BROMFENAC SODIUM
     Indication: POSTOPERATIVE CARE
     Route: 047
     Dates: start: 20180628
  2. BESIVANCE [Suspect]
     Active Substance: BESIFLOXACIN
     Indication: PREOPERATIVE CARE
     Route: 047
     Dates: start: 20180627
  3. PREDNISOLONE SODIUM PHOSPHATE OPHTHALMIC SOLUTION USP 1% [Suspect]
     Active Substance: PREDNISOLONE SODIUM PHOSPHATE
     Indication: POSTOPERATIVE CARE
     Route: 047
     Dates: start: 20180628
  4. BESIVANCE [Suspect]
     Active Substance: BESIFLOXACIN
     Indication: OFF LABEL USE
     Route: 047
     Dates: start: 20180628

REACTIONS (3)
  - Eye irritation [Not Recovered/Not Resolved]
  - Off label use [Unknown]
  - Eye pain [Not Recovered/Not Resolved]

NARRATIVE: CASE EVENT DATE: 20180627
